FAERS Safety Report 5928527-1 (Version None)
Quarter: 2008Q4

REPORT INFORMATION
  Report Type: 
  Country: None (occurrence: None)
  Receive Date: 20081023
  Receipt Date: 20081013
  Transmission Date: 20090506
  Serious: Yes (Hospitalization)
  Sender: FDA-Public Use
  Company Number: US-PURDUE-USA_2002_0003288

PATIENT
  Age: 54 Year
  Sex: Male

DRUGS (16)
  1. OXYCONTIN [Suspect]
     Indication: PAIN
     Dosage: 10 MG, Q12H
     Route: 048
  2. OXYCONTIN [Suspect]
     Indication: PAIN
     Dosage: 20 MG, Q12H
     Route: 048
  3. URISPAS [Concomitant]
     Indication: BLADDER SPASM
     Dosage: 100 MG, BID
     Route: 048
  4. SOMA [Concomitant]
     Indication: MUSCLE SPASMS
     Dosage: 350 MG, Q12H
     Route: 048
  5. FLOVENT [Concomitant]
     Indication: DRUG USE FOR UNKNOWN INDICATION
     Dosage: 2 PUFF, Q12H
     Route: 055
  6. QUININE SULFATE [Concomitant]
     Indication: DRUG USE FOR UNKNOWN INDICATION
     Dosage: 265 MG, NOCTE
     Route: 048
  7. REMERON [Concomitant]
     Indication: DRUG USE FOR UNKNOWN INDICATION
     Dosage: 15 MG, NOCTE
     Route: 048
  8. CELEBREX [Concomitant]
     Indication: DRUG USE FOR UNKNOWN INDICATION
     Dosage: 200 MG, BID
     Route: 048
  9. GLUCOPHAGE [Concomitant]
     Indication: DIABETES MELLITUS
     Dosage: 1000 MG, NOCTE
     Route: 048
  10. ACTOS ^LILLY^ [Concomitant]
     Indication: DIABETES MELLITUS
     Dosage: 45 MG, AM
     Route: 048
  11. ZESTRIL [Concomitant]
     Indication: HYPERTENSION
     Route: 048
  12. HUMALOG [Concomitant]
     Indication: DIABETES MELLITUS
     Dosage: UNK, UNK
     Route: 058
  13. FLOMAX [Concomitant]
     Indication: BENIGN PROSTATIC HYPERPLASIA
     Dosage: .4 MG, DAILY
     Route: 048
  14. ASPIRIN [Concomitant]
     Indication: DRUG USE FOR UNKNOWN INDICATION
     Dosage: 1 TABLET, DAILY
     Route: 048
  15. ANCEF                              /00288502/ [Concomitant]
     Dosage: UNK UNK, UNK
     Route: 065
  16. SOLU-MEDROL [Concomitant]
     Dosage: UNK UNK, UNK
     Route: 065

REACTIONS (17)
  - BENIGN PROSTATIC HYPERPLASIA [None]
  - BLADDER SPASM [None]
  - CHEST PAIN [None]
  - CHRONIC OBSTRUCTIVE PULMONARY DISEASE [None]
  - DEPRESSION [None]
  - DRUG INEFFECTIVE [None]
  - DYSPNOEA [None]
  - DYSURIA [None]
  - FALL [None]
  - HYPERGLYCAEMIA [None]
  - INFLUENZA LIKE ILLNESS [None]
  - INSOMNIA [None]
  - MUSCLE ABSCESS [None]
  - MUSCLE SPASMS [None]
  - NAUSEA [None]
  - PHARYNGITIS [None]
  - ROAD TRAFFIC ACCIDENT [None]
